FAERS Safety Report 8961348 (Version 1)
Quarter: 2012Q4

REPORT INFORMATION
  Report Type: 
  Country: US (occurrence: US)
  Receive Date: 20121213
  Receipt Date: 20121213
  Transmission Date: 20130627
  Serious: Yes (Hospitalization)
  Sender: FDA-Public Use
  Company Number: US-BAYER-2012-129219

PATIENT
  Age: 31 Year
  Sex: Female

DRUGS (3)
  1. YASMIN [Suspect]
  2. CITALOPRAM [Concomitant]
     Dosage: 40 mg, UNK
     Dates: start: 20070605
  3. PROPRANOLOL [Concomitant]
     Dosage: 40 mg, UNK
     Dates: start: 20070605

REACTIONS (1)
  - Pulmonary embolism [Recovering/Resolving]
